FAERS Safety Report 22351619 (Version 2)
Quarter: 2023Q2

REPORT INFORMATION
  Report Type: Spontaneous
  Country: JP (occurrence: JP)
  Receive Date: 20230522
  Receipt Date: 20230614
  Transmission Date: 20230721
  Serious: Yes (Other)
  Sender: FDA-Public Use
  Company Number: JP-OTSUKA-2023_012988

PATIENT
  Age: 87 Year
  Sex: Female

DRUGS (4)
  1. TOLVAPTAN [Suspect]
     Active Substance: TOLVAPTAN
     Indication: Cardiac failure chronic
     Dosage: 2 VIALS, EVERY DAY
     Route: 041
     Dates: start: 20230511
  2. SAMSCA [Suspect]
     Active Substance: TOLVAPTAN
     Indication: Cardiac failure chronic
     Dosage: UNK
     Route: 048
     Dates: end: 20230510
  3. CARPERITIDE [Concomitant]
     Active Substance: CARPERITIDE
     Indication: Product used for unknown indication
     Dosage: UNK
     Route: 041
  4. LEVODOPA [Concomitant]
     Active Substance: LEVODOPA
     Indication: Product used for unknown indication
     Dosage: UNK
     Route: 048

REACTIONS (3)
  - Pancreatitis [Recovered/Resolved]
  - Cardiac failure [Recovered/Resolved]
  - Liver disorder [Recovered/Resolved]

NARRATIVE: CASE EVENT DATE: 20230515
